FAERS Safety Report 17941289 (Version 2)
Quarter: 2020Q3

REPORT INFORMATION
  Report Type: Report from Study
  Country: US (occurrence: US)
  Receive Date: 20200624
  Receipt Date: 20200708
  Transmission Date: 20201103
  Serious: Yes (Hospitalization)
  Sender: FDA-Public Use
  Company Number: US-ACTELION-A-NJ2020-206332

PATIENT
  Sex: Female

DRUGS (3)
  1. SILDENAFIL. [Concomitant]
     Active Substance: SILDENAFIL
     Dosage: 10 MG, TID
  2. TRACLEER [Suspect]
     Active Substance: BOSENTAN
     Indication: PULMONARY ARTERIAL HYPERTENSION
     Dosage: UNK
     Route: 048
     Dates: start: 20160212
  3. REMODULIN [Concomitant]
     Active Substance: TREPROSTINIL
     Dosage: 89 NG/KG, PER MIN

REACTIONS (3)
  - Adenoidectomy [Unknown]
  - Tonsillectomy [Unknown]
  - Upper airway obstruction [Unknown]
